FAERS Safety Report 5309861-5 (Version None)
Quarter: 2007Q2

REPORT INFORMATION
  Report Type: 
  Country: None (occurrence: None)
  Receive Date: 20070427
  Receipt Date: 20070418
  Transmission Date: 20071010
  Serious: Yes (Other)
  Sender: FDA-Public Use
  Company Number: JP-ROCHE-489109

PATIENT
  Age: 72 Year
  Sex: Male
  Weight: 68 kg

DRUGS (4)
  1. TAMIFLU [Suspect]
     Route: 048
     Dates: start: 20070313, end: 20070314
  2. CLARITHROMYCIN [Concomitant]
     Route: 048
     Dates: start: 20070313, end: 20070319
  3. HUSCODE [Concomitant]
     Route: 048
     Dates: start: 20070313, end: 20070319
  4. COCARL [Concomitant]
     Dosage: GENERIC REPORTED AS ACETOMINPHEN.
     Route: 048
     Dates: start: 20070313, end: 20070314

REACTIONS (1)
  - DELUSION [None]
